FAERS Safety Report 9451423 (Version 2)
Quarter: 2013Q3

REPORT INFORMATION
  Report Type: Spontaneous
  Country: DE (occurrence: DE)
  Receive Date: 20130809
  Receipt Date: 20130820
  Transmission Date: 20140515
  Serious: Yes (Hospitalization, Other)
  Sender: FDA-Public Use
  Company Number: GXKR2013DE002606

PATIENT
  Age: 74 Year
  Sex: Male
  Weight: 83.5 kg

DRUGS (4)
  1. CLINDAHEXAL [Suspect]
     Indication: ERYSIPELAS
     Dosage: 600 MG, BID
     Route: 048
     Dates: start: 201307
  2. CLINDAHEXAL [Suspect]
     Dosage: 600 MG, BID
     Dates: end: 20130731
  3. RIVANOL [Concomitant]
     Indication: ERYSIPELAS
  4. FLAMMAZINE [Concomitant]
     Indication: ERYSIPELAS

REACTIONS (6)
  - Pharyngeal oedema [Recovered/Resolved]
  - Throat tightness [Recovered/Resolved]
  - Oropharyngeal pain [Recovered/Resolved]
  - Pharyngeal disorder [Recovered/Resolved]
  - Foreign body [Recovered/Resolved]
  - Inflammation [Recovered/Resolved]
